FAERS Safety Report 18559299 (Version 3)
Quarter: 2023Q2

REPORT INFORMATION
  Report Type: Report from Study
  Country: JP (occurrence: JP)
  Receive Date: 20201130
  Receipt Date: 20230417
  Transmission Date: 20230722
  Serious: Yes (Death, Life-Threatening, Hospitalization)
  Sender: FDA-Public Use
  Company Number: JP-PFIZER INC-2020471370

PATIENT
  Age: 75 Year
  Sex: Female
  Weight: 38.5 kg

DRUGS (12)
  1. VYNDAQEL [Suspect]
     Active Substance: TAFAMIDIS MEGLUMINE
     Indication: Cardiac amyloidosis
     Dosage: 80 MG, 1X/DAY
     Route: 048
     Dates: start: 20190815, end: 20201112
  2. BISOPROLOL [Concomitant]
     Active Substance: BISOPROLOL
     Indication: Ventricular tachycardia
     Dosage: UNK
     Route: 058
     Dates: start: 20200219, end: 20200311
  3. VERAPAMIL [Concomitant]
     Active Substance: VERAPAMIL HYDROCHLORIDE
     Indication: Ventricular tachycardia
     Dosage: 80 MG, DAILY
     Route: 048
     Dates: start: 20200219, end: 20200311
  4. NOREPINEPHRINE BITARTRATE [Concomitant]
     Active Substance: NOREPINEPHRINE BITARTRATE
     Indication: Atrial tachycardia
     Dosage: UNK
     Dates: start: 20201112, end: 202011
  5. NIFEKALANT [Concomitant]
     Active Substance: NIFEKALANT
     Indication: Atrial tachycardia
     Dosage: UNK
     Dates: start: 20201112, end: 202011
  6. BISOPROLOL FUMARATE [Concomitant]
     Active Substance: BISOPROLOL FUMARATE
     Dosage: UNK
     Route: 048
     Dates: end: 20201112
  7. SPIRONOLACTONE [Concomitant]
     Active Substance: SPIRONOLACTONE
     Dosage: UNK
     Route: 048
     Dates: end: 20201112
  8. ATORVASTATIN [Concomitant]
     Active Substance: ATORVASTATIN
     Dosage: UNK
     Route: 048
     Dates: end: 20201112
  9. CIFENLINE SUCCINATE [Concomitant]
     Active Substance: CIFENLINE SUCCINATE
     Dosage: UNK
     Route: 048
     Dates: end: 20201112
  10. FEBUXOSTAT [Concomitant]
     Active Substance: FEBUXOSTAT
     Dosage: UNK
     Route: 048
     Dates: end: 20201112
  11. VONOPRAZAN FUMARATE [Concomitant]
     Active Substance: VONOPRAZAN FUMARATE
     Dosage: UNK
     Route: 048
     Dates: start: 20200226, end: 20201112
  12. ELIQUIS [Concomitant]
     Active Substance: APIXABAN
     Indication: Ventricular tachycardia
     Dosage: UNK
     Route: 048
     Dates: start: 20200226, end: 20201112

REACTIONS (3)
  - Septic shock [Fatal]
  - Atrial tachycardia [Unknown]
  - Ventricular tachycardia [Recovering/Resolving]

NARRATIVE: CASE EVENT DATE: 20200219
